FAERS Safety Report 10758749 (Version 1)
Quarter: 2015Q1

REPORT INFORMATION
  Report Type: Spontaneous
  Country: US (occurrence: None)
  Receive Date: 20150123
  Receipt Date: 20150123
  Transmission Date: 20150721
  Serious: Yes (Hospitalization)
  Sender: FDA-Public Use
  Company Number: TPA2013A01790

PATIENT
  Age: 75 Year
  Sex: Female
  Weight: 69 kg

DRUGS (13)
  1. LIPITOR [Concomitant]
     Active Substance: ATORVASTATIN CALCIUM
  2. ZEMPLAR [Concomitant]
     Active Substance: PARICALCITOL
  3. EPOGEN [Concomitant]
     Active Substance: ERYTHROPOIETIN
  4. OMONTYS [Suspect]
     Active Substance: PEGINESATIDE
     Indication: NEPHROGENIC ANAEMIA
     Dates: start: 20130208, end: 20130208
  5. LASIX [Concomitant]
     Active Substance: FUROSEMIDE
  6. PROTONIX [Concomitant]
     Active Substance: PANTOPRAZOLE SODIUM
  7. ATENOLOL. [Concomitant]
     Active Substance: ATENOLOL
  8. TUMS [Concomitant]
     Active Substance: CALCIUM CARBONATE
  9. LISINOPRIL. [Concomitant]
     Active Substance: LISINOPRIL
  10. CLONIDINE. [Concomitant]
     Active Substance: CLONIDINE
  11. HEPARIN [Concomitant]
     Active Substance: HEPARIN SODIUM
  12. NORVASC [Concomitant]
     Active Substance: AMLODIPINE BESYLATE
  13. FOLBEE (PYRIDOXINE HYDROCHLORIDE, FOLIC ACID, CYANOCOBALAMIN) [Concomitant]

REACTIONS (1)
  - Deep vein thrombosis [None]

NARRATIVE: CASE EVENT DATE: 20130215
